FAERS Safety Report 8193213-7 (Version None)
Quarter: 2012Q1

REPORT INFORMATION
  Report Type: 
  Country: None (occurrence: None)
  Receive Date: 20120308
  Receipt Date: 20120227
  Transmission Date: 20120608
  Serious: Yes (Other)
  Sender: FDA-Public Use
  Company Number: JP-SANOFI-AVENTIS-2012SA015143

PATIENT
  Age: 66 Year
  Sex: Male
  Weight: 67 kg

DRUGS (10)
  1. ACETAMINOPHEN [Suspect]
     Indication: NASOPHARYNGEAL CANCER
     Route: 048
     Dates: start: 20120106, end: 20120125
  2. ZOLPIDEM [Suspect]
     Indication: INSOMNIA
     Route: 048
     Dates: start: 20120128, end: 20120212
  3. FAMOTIDINE [Suspect]
     Route: 048
     Dates: start: 20120212, end: 20120212
  4. MAGNESIUM SULFATE [Concomitant]
     Indication: CONSTIPATION
     Dates: start: 20120203, end: 20120212
  5. FAMOTIDINE [Suspect]
     Route: 048
     Dates: start: 20120213, end: 20120214
  6. SOLANTAL [Suspect]
     Indication: NASOPHARYNGEAL CANCER
     Route: 048
     Dates: start: 20120128, end: 20120212
  7. ACETAMINOPHEN [Suspect]
     Route: 048
     Dates: start: 20120126, end: 20120212
  8. CEFAZOLIN SODIUM [Concomitant]
     Dates: start: 20120212
  9. LOXONIN [Suspect]
     Indication: NASOPHARYNGEAL CANCER
     Route: 048
     Dates: start: 20120131, end: 20120212
  10. UFT [Suspect]
     Route: 065

REACTIONS (6)
  - RENAL IMPAIRMENT [None]
  - HEPATIC FUNCTION ABNORMAL [None]
  - DIARRHOEA [None]
  - PYREXIA [None]
  - RASH [None]
  - PANCYTOPENIA [None]
